FAERS Safety Report 5567920-6 (Version None)
Quarter: 2007Q4

REPORT INFORMATION
  Report Type: 
  Country: None (occurrence: None)
  Receive Date: 20071220
  Receipt Date: 20071210
  Transmission Date: 20080405
  Serious: Yes (Other)
  Sender: FDA-Public Use
  Company Number: US-JNJFOC-20071203300

PATIENT
  Sex: Female
  Weight: 90.72 kg

DRUGS (3)
  1. FENTANYL TRANSDERMAL SYSTEM [Suspect]
     Indication: PAIN
     Route: 062
  2. LORCET [Concomitant]
     Indication: BREAKTHROUGH PAIN
     Route: 048
  3. PROZAC [Concomitant]
     Indication: DEPRESSION
     Route: 048

REACTIONS (5)
  - HIATUS HERNIA [None]
  - HYPERHIDROSIS [None]
  - PHARMACEUTICAL PRODUCT COMPLAINT [None]
  - WEIGHT INCREASED [None]
  - WRONG TECHNIQUE IN DRUG USAGE PROCESS [None]
